APPROVED DRUG PRODUCT: Q-GESIC
Active Ingredient: ASPIRIN; MEPROBAMATE
Strength: 325MG;200MG
Dosage Form/Route: TABLET;ORAL
Application: A088740 | Product #001
Applicant: QUANTUM PHARMICS LTD
Approved: Jun 1, 1984 | RLD: No | RS: No | Type: DISCN